FAERS Safety Report 23149770 (Version 1)
Quarter: 2023Q4

REPORT INFORMATION
  Report Type: Spontaneous
  Country: AU (occurrence: AU)
  Receive Date: 20231106
  Receipt Date: 20231106
  Transmission Date: 20240110
  Serious: Yes (Other)
  Sender: FDA-Public Use
  Company Number: AU-TAKEDA-2023TUS106117

PATIENT
  Sex: Female

DRUGS (1)
  1. PRUCALOPRIDE SUCCINATE [Suspect]
     Active Substance: PRUCALOPRIDE SUCCINATE
     Indication: Product used for unknown indication
     Dosage: UNK
     Route: 065

REACTIONS (11)
  - Haematochezia [Unknown]
  - Patient dissatisfaction with treatment [Unknown]
  - Mood altered [Unknown]
  - Nausea [Unknown]
  - Dizziness [Unknown]
  - Pyrexia [Unknown]
  - Tremor [Unknown]
  - Decreased appetite [Unknown]
  - Fatigue [Unknown]
  - Diarrhoea [Unknown]
  - Therapy cessation [Unknown]
